FAERS Safety Report 5669630-3 (Version None)
Quarter: 2008Q1

REPORT INFORMATION
  Report Type: 
  Country: None (occurrence: None)
  Receive Date: 20080317
  Receipt Date: 20080305
  Transmission Date: 20080703
  Serious: Yes (Hospitalization)
  Sender: FDA-Public Use
  Company Number: PHHO2008IT03263

PATIENT
  Sex: Male
  Weight: 72.8 kg

DRUGS (2)
  1. NEORAL [Suspect]
     Indication: RENAL TRANSPLANT
     Dosage: UNK, UNK
     Dates: start: 20060220
  2. CERTICAN [Suspect]
     Indication: RENAL TRANSPLANT
     Dosage: 1.25 / DAY
     Route: 048
     Dates: start: 20080220

REACTIONS (2)
  - HAEMORRHAGE [None]
  - WOUND DEHISCENCE [None]
